FAERS Safety Report 5122872-8 (Version None)
Quarter: 2006Q4

REPORT INFORMATION
  Report Type: 
  Country: None (occurrence: None)
  Receive Date: 20061005
  Receipt Date: 20060816
  Transmission Date: 20070319
  Serious: Yes (Death, Hospitalization)
  Sender: FDA-Public Use
  Company Number: 2006114984

PATIENT
  Sex: Male

DRUGS (2)
  1. CELEBREX [Suspect]
     Indication: ARTHRITIS
     Dosage: 100 MG (100 MG, 1 IN 1 D)
     Dates: start: 20000117, end: 20040602
  2. BEXTRA [Suspect]
     Indication: ARTHRITIS
     Dosage: 100 MG (100 MG, 11 IN 1 D)
     Dates: start: 20030725, end: 20030907

REACTIONS (1)
  - CEREBROVASCULAR ACCIDENT [None]
